FAERS Safety Report 12773932 (Version 4)
Quarter: 2018Q1

REPORT INFORMATION
  Report Type: Report from Study
  Country: CA (occurrence: CA)
  Receive Date: 20160923
  Receipt Date: 20180123
  Transmission Date: 20180508
  Serious: Yes (Life-Threatening, Other)
  Sender: FDA-Public Use
  Company Number: CA-ROCHE-1831131

PATIENT
  Age: 17 Year
  Sex: Female

DRUGS (10)
  1. XOLAIR [Suspect]
     Active Substance: OMALIZUMAB
     Route: 058
     Dates: start: 20160829
  2. XOLAIR [Suspect]
     Active Substance: OMALIZUMAB
     Route: 058
     Dates: start: 20160419
  3. XOLAIR [Suspect]
     Active Substance: OMALIZUMAB
     Route: 058
     Dates: start: 20170321
  4. XOLAIR [Suspect]
     Active Substance: OMALIZUMAB
     Route: 058
     Dates: start: 20170321
  5. RANITIDINE. [Concomitant]
     Active Substance: RANITIDINE
     Indication: PRODUCT USED FOR UNKNOWN INDICATION
     Route: 065
  6. XOLAIR [Suspect]
     Active Substance: OMALIZUMAB
     Indication: CHRONIC SPONTANEOUS URTICARIA
     Dosage: 3 MONTH
     Route: 058
     Dates: start: 20160120
  7. XOLAIR [Suspect]
     Active Substance: OMALIZUMAB
     Route: 058
     Dates: start: 20160628
  8. XOLAIR [Suspect]
     Active Substance: OMALIZUMAB
     Route: 058
     Dates: start: 20160829
  9. XOLAIR [Suspect]
     Active Substance: OMALIZUMAB
     Dosage: 3 MONTH
     Route: 058
     Dates: start: 201607
  10. XOLAIR [Suspect]
     Active Substance: OMALIZUMAB
     Route: 058
     Dates: start: 201612

REACTIONS (28)
  - Antimitochondrial antibody positive [Unknown]
  - Mood altered [Recovering/Resolving]
  - Stress [Unknown]
  - Swollen tongue [Unknown]
  - Angiodermatitis [Unknown]
  - Microcytic anaemia [Unknown]
  - Social fear [Unknown]
  - Urticaria [Unknown]
  - Contusion [Unknown]
  - Idiosyncratic drug reaction [Unknown]
  - Inguinal mass [Unknown]
  - Platelet count decreased [Recovered/Resolved]
  - Anti-thyroid antibody positive [Unknown]
  - Anxiety [Unknown]
  - Peripheral swelling [Recovering/Resolving]
  - Lip swelling [Unknown]
  - Depression [Unknown]
  - Sleep disorder [Unknown]
  - Swelling face [Unknown]
  - Eye swelling [Unknown]
  - Drug effect incomplete [Unknown]
  - Amnesia [Unknown]
  - Weight decreased [Recovered/Resolved]
  - Suicide attempt [Unknown]
  - Thrombocytopenia [Recovered/Resolved]
  - Fatigue [Unknown]
  - Serum ferritin decreased [Unknown]
  - Angioedema [Unknown]

NARRATIVE: CASE EVENT DATE: 20160207
